FAERS Safety Report 8292175-1 (Version None)
Quarter: 2012Q2

REPORT INFORMATION
  Report Type: 
  Country: None (occurrence: None)
  Receive Date: 20120412
  Receipt Date: 20120403
  Transmission Date: 20120825
  Serious: Yes (Other)
  Sender: FDA-Public Use
  Company Number: 2012SP018002

PATIENT
  Age: 48 Year
  Sex: Female
  Weight: 55 kg

DRUGS (7)
  1. RIBAVIRIN (RIBAVIRIN /00816701/) (1000 MG) [Suspect]
     Indication: HEPATITIS C
     Dosage: 1000 MG;BID
     Dates: start: 20080101
  2. LAMIVUDINE [Concomitant]
  3. ZIDOVUDINE [Concomitant]
  4. ATAZANAVIR [Concomitant]
  5. EFAVIRENZ [Concomitant]
  6. PEGINTERFERON ALFA-2B [Suspect]
     Indication: HEPATITIS C
     Dosage: 80 MCG;QW
     Dates: start: 20080101
  7. RITONAVIR [Concomitant]

REACTIONS (4)
  - RASH GENERALISED [None]
  - RASH ERYTHEMATOUS [None]
  - EXFOLIATIVE RASH [None]
  - PURPURA [None]
